FAERS Safety Report 24730615 (Version 3)
Quarter: 2025Q1

REPORT INFORMATION
  Report Type: Spontaneous
  Country: US (occurrence: US)
  Receive Date: 20241213
  Receipt Date: 20250108
  Transmission Date: 20250408
  Serious: No
  Sender: Harrow Health
  Company Number: US-IMP-2024001110

PATIENT
  Age: 64 Year
  Sex: Female

DRUGS (5)
  1. VEVYE [Suspect]
     Active Substance: CYCLOSPORINE
     Indication: Dry eye
     Dosage: BOTTLE 1
     Route: 047
     Dates: start: 202410
  2. VEVYE [Suspect]
     Active Substance: CYCLOSPORINE
     Indication: Dry eye
     Route: 047
  3. VEVYE [Suspect]
     Active Substance: CYCLOSPORINE
     Indication: Dry eye
     Dosage: BOTTLE 3
     Route: 047
  4. MIEBO [Concomitant]
     Active Substance: PERFLUOROHEXYLOCTANE
  5. RESTASIS [Concomitant]
     Active Substance: CYCLOSPORINE

REACTIONS (5)
  - Eye pain [Not Recovered/Not Resolved]
  - Eye irritation [Not Recovered/Not Resolved]
  - Vision blurred [Not Recovered/Not Resolved]
  - Product quality issue [Unknown]
  - Corneal irritation [Not Recovered/Not Resolved]
